FAERS Safety Report 19363119 (Version 3)
Quarter: 2021Q3

REPORT INFORMATION
  Report Type: Spontaneous
  Country: CN (occurrence: CN)
  Receive Date: 20210602
  Receipt Date: 20210702
  Transmission Date: 20211014
  Serious: Yes (Hospitalization, Other)
  Sender: FDA-Public Use
  Company Number: CN-SA-2021SA180399

PATIENT
  Age: 38 Year
  Sex: Male

DRUGS (2)
  1. DUPIXENT [Suspect]
     Active Substance: DUPILUMAB
     Dosage: 600 MG, 1X
     Route: 058
     Dates: start: 20210523, end: 20210523
  2. TRIPTERYGIUM WILFORDII [Concomitant]
     Active Substance: HERBALS

REACTIONS (3)
  - Purpura [Unknown]
  - Skin lesion [Unknown]
  - Petechiae [Recovering/Resolving]

NARRATIVE: CASE EVENT DATE: 20210523
